FAERS Safety Report 20030934 (Version 1)
Quarter: 2021Q4

REPORT INFORMATION
  Report Type: Spontaneous
  Country: CN (occurrence: CN)
  Receive Date: 20211103
  Receipt Date: 20211103
  Transmission Date: 20220303
  Serious: Yes (Hospitalization)
  Sender: FDA-Public Use
  Company Number: CN-BAYER-2021A241805

PATIENT
  Sex: Male

DRUGS (2)
  1. STIVARGA [Suspect]
     Active Substance: REGORAFENIB
     Indication: Hepatic cancer
     Dosage: 2 DF, QD
     Dates: start: 20210604
  2. TISLELIZUMAB [Suspect]
     Active Substance: TISLELIZUMAB
     Indication: Hepatic cancer
     Dosage: 200 MG, Q3WK
     Route: 042
     Dates: start: 20210604, end: 20210904

REACTIONS (5)
  - Hepatic cancer [Not Recovered/Not Resolved]
  - Eczema [Recovering/Resolving]
  - Blister [None]
  - Pain [Recovering/Resolving]
  - Off label use [None]

NARRATIVE: CASE EVENT DATE: 20210604
